FAERS Safety Report 19042179 (Version 2)
Quarter: 2021Q2

REPORT INFORMATION
  Report Type: Spontaneous
  Country: DE (occurrence: DE)
  Receive Date: 20210322
  Receipt Date: 20210419
  Transmission Date: 20210717
  Serious: Yes (Hospitalization, Other)
  Sender: FDA-Public Use
  Company Number: NVSC2021DE046173

PATIENT
  Age: 47 Year
  Sex: Male

DRUGS (2)
  1. ACICLOVIR [Suspect]
     Active Substance: ACYCLOVIR
     Indication: HERPES ZOSTER
  2. ACICLOVIR [Suspect]
     Active Substance: ACYCLOVIR
     Indication: HERPES OPHTHALMIC
     Dosage: UNK
     Route: 042

REACTIONS (4)
  - Product administered to patient of inappropriate age [Unknown]
  - Alopecia [Unknown]
  - Herpes ophthalmic [Unknown]
  - Vaccination failure [Unknown]
